FAERS Safety Report 4545084-5 (Version None)
Quarter: 2004Q4

REPORT INFORMATION
  Report Type: 
  Country: None (occurrence: None)
  Receive Date: 20041222
  Receipt Date: 20040505
  Transmission Date: 20050328
  Serious: Yes (Hospitalization)
  Sender: FDA-Public Use
  Company Number: US_0405102900

PATIENT
  Age: 53 Year
  Sex: Male
  Weight: 73 kg

DRUGS (1)
  1. HUMALOG MIX 75/25 [Suspect]
     Dosage: 45 U DAY
     Dates: start: 20020101

REACTIONS (7)
  - BLOOD GLUCOSE DECREASED [None]
  - BLOOD GLUCOSE INCREASED [None]
  - IRRITABILITY [None]
  - RETINAL DISORDER [None]
  - SCIATICA [None]
  - TREMOR [None]
  - VISUAL ACUITY REDUCED [None]
